FAERS Safety Report 7352437-9 (Version None)
Quarter: 2011Q1

REPORT INFORMATION
  Report Type: 
  Country: None (occurrence: None)
  Receive Date: 20110301
  Receipt Date: 20100406
  Transmission Date: 20110831
  Serious: Yes (Hospitalization, Other)
  Sender: FDA-Public Use
  Company Number: 229941USA

PATIENT
  Age: 87 Year
  Sex: Female

DRUGS (1)
  1. MIRTAZAPINE [Suspect]
     Indication: APPETITE DISORDER
     Dosage: ORAL
     Route: 048
     Dates: start: 20100204

REACTIONS (7)
  - PULMONARY EMBOLISM [None]
  - DEEP VEIN THROMBOSIS [None]
  - TREMOR [None]
  - APHTHOUS STOMATITIS [None]
  - PYREXIA [None]
  - HYPOXIA [None]
  - OROPHARYNGEAL PAIN [None]
